FAERS Safety Report 19262990 (Version 1)
Quarter: 2021Q2

REPORT INFORMATION
  Report Type: Spontaneous
  Country: TR (occurrence: TR)
  Receive Date: 20210517
  Receipt Date: 20210517
  Transmission Date: 20210717
  Serious: Yes (Death, Life-Threatening, Hospitalization)
  Sender: FDA-Public Use
  Company Number: TR-EPICPHARMA-TR-2021EPCLIT00518

PATIENT
  Age: 16 Year
  Sex: Female

DRUGS (2)
  1. NATEGLINIDE. [Suspect]
     Active Substance: NATEGLINIDE
     Indication: PRODUCT USED FOR UNKNOWN INDICATION
     Dosage: 84 NATEGLINIDE 120 MG TABLETS
     Route: 048
  2. METFORMIN HYDROCHLORIDE. [Suspect]
     Active Substance: METFORMIN HYDROCHLORIDE
     Indication: PRODUCT USED FOR UNKNOWN INDICATION
     Dosage: 100 METFORMIN 850 MG TABLETS
     Route: 048

REACTIONS (8)
  - Intentional overdose [Fatal]
  - Toxicity to various agents [Fatal]
  - Coma [Fatal]
  - Lactic acidosis [Fatal]
  - Completed suicide [Fatal]
  - Multiple organ dysfunction syndrome [Fatal]
  - Cardiac arrest [Fatal]
  - Renal failure [Fatal]
